FAERS Safety Report 25739208 (Version 1)
Quarter: 2025Q3

REPORT INFORMATION
  Report Type: Spontaneous
  Country: US (occurrence: US)
  Receive Date: 20250829
  Receipt Date: 20250829
  Transmission Date: 20251021
  Serious: Yes (Death)
  Sender: ROCHE
  Company Number: US-ROCHE-10000376507

PATIENT
  Sex: Female

DRUGS (18)
  1. ACTEMRA ACTPEN [Suspect]
     Active Substance: TOCILIZUMAB
     Indication: Rheumatoid arthritis
     Route: 058
  2. ALBUTEROL [Concomitant]
     Active Substance: ALBUTEROL
  3. BUPROPION [Concomitant]
     Active Substance: BUPROPION
  4. CELEBREX [Concomitant]
     Active Substance: CELECOXIB
  5. CYCLOBENZAPRINE [Concomitant]
     Active Substance: CYCLOBENZAPRINE
  6. DULOXETINE [Concomitant]
     Active Substance: DULOXETINE
  7. FLONASE [Concomitant]
     Active Substance: FLUTICASONE PROPIONATE
  8. HYDROCODONE [Concomitant]
     Active Substance: HYDROCODONE
  9. HYDROCORTISONE [Concomitant]
     Active Substance: HYDROCORTISONE
  10. LEVOTHYROXINE [Concomitant]
     Active Substance: LEVOTHYROXINE
  11. METHOTREXATE [Concomitant]
     Active Substance: METHOTREXATE
  12. MONTELUKAST [Concomitant]
     Active Substance: MONTELUKAST
  13. OMEPRAZOLE [Concomitant]
     Active Substance: OMEPRAZOLE
  14. POTASSIUM [Concomitant]
     Active Substance: POTASSIUM
  15. SYMBICORT [Concomitant]
     Active Substance: BUDESONIDE\FORMOTEROL FUMARATE DIHYDRATE
  16. TRELEGY ELLIPTA [Concomitant]
     Active Substance: FLUTICASONE FUROATE\UMECLIDINIUM BROMIDE\VILANTEROL TRIFENATATE
  17. XARELTO [Concomitant]
     Active Substance: RIVAROXABAN
  18. ZOLPIDEM [Concomitant]
     Active Substance: ZOLPIDEM TARTRATE

REACTIONS (1)
  - Death [Fatal]
